FAERS Safety Report 10173422 (Version 1)
Quarter: 2014Q2

REPORT INFORMATION
  Report Type: Spontaneous
  Country: US (occurrence: None)
  Receive Date: 20140514
  Receipt Date: 20140514
  Transmission Date: 20141212
  Serious: No
  Sender: FDA-Public Use
  Company Number: None

PATIENT
  Age: 68 Year
  Sex: Female
  Weight: 68.04 kg

DRUGS (1)
  1. MIRAPEX (PRAMIPEXOLE DIHYDROCHLORIDE) [Suspect]
     Indication: RESTLESS LEGS SYNDROME
     Route: 048
     Dates: start: 20020415, end: 20140426

REACTIONS (21)
  - Insomnia [None]
  - Pathological gambling [None]
  - Cardiac disorder [None]
  - Urinary incontinence [None]
  - Amnesia [None]
  - Restlessness [None]
  - Thinking abnormal [None]
  - Hypersomnia [None]
  - Disturbance in attention [None]
  - Peripheral swelling [None]
  - Muscle spasms [None]
  - Synovial cyst [None]
  - Pain in extremity [None]
  - Pain in extremity [None]
  - Muscle spasms [None]
  - Hypoaesthesia [None]
  - Pain in extremity [None]
  - Arthralgia [None]
  - Pain [None]
  - Quality of life decreased [None]
  - Hypoaesthesia [None]
